FAERS Safety Report 11365492 (Version 5)
Quarter: 2016Q1

REPORT INFORMATION
  Report Type: Report from Study
  Country: PL (occurrence: PL)
  Receive Date: 20150811
  Receipt Date: 20160311
  Transmission Date: 20160525
  Serious: Yes (Hospitalization)
  Sender: FDA-Public Use
  Company Number: PL-PFIZER INC-2015256350

PATIENT
  Age: 47 Year
  Sex: Male
  Weight: 78.5 kg

DRUGS (5)
  1. TOFACITINIB CITRATE [Suspect]
     Active Substance: TOFACITINIB CITRATE
     Indication: PSORIATIC ARTHROPATHY
     Dosage: 5 MG, 2X/DAY
     Route: 048
     Dates: start: 20150407, end: 20150702
  2. FOLIC ACID. [Concomitant]
     Active Substance: FOLIC ACID
     Dosage: 15 MG, 4 TIMES A WEEK
     Route: 048
     Dates: start: 20130627
  3. CONTROLOC [Concomitant]
     Active Substance: PANTOPRAZOLE SODIUM
     Dosage: 20 MG, DAILY
     Route: 048
     Dates: start: 201110
  4. METHOTREXATE [Concomitant]
     Active Substance: METHOTREXATE
     Dosage: 20 MG, WEEKLY
     Route: 048
     Dates: start: 20140317
  5. AMLODIPINE [Concomitant]
     Active Substance: AMLODIPINE BESYLATE
     Dosage: 10 MG, DAILY
     Route: 048
     Dates: start: 2014

REACTIONS (1)
  - Serratia sepsis [Recovered/Resolved]

NARRATIVE: CASE EVENT DATE: 20150702
